FAERS Safety Report 8148600 (Version 3)
Quarter: 2012Q4

REPORT INFORMATION
  Report Type: 
  Country: US (occurrence: US)
  Receive Date: 20110922
  Receipt Date: 20121102
  Transmission Date: 20130627
  Serious: No
  Sender: FDA-Public Use
  Company Number: US-ASTRAZENECA-2010SE50611

PATIENT
  Age: 38 Year
  Sex: Female
  Weight: 47.6 kg

DRUGS (11)
  1. SEROQUEL XR [Suspect]
     Indication: CONVULSION
     Dosage: UNKNOWN DOSE AT NIGHTS
     Route: 048
     Dates: start: 2009
  2. SEROQUEL XR [Suspect]
     Indication: SEROTONIN SYNDROME
     Dosage: UNKNOWN DOSE AT NIGHTS
     Route: 048
     Dates: start: 2009
  3. SEROQUEL XR [Suspect]
     Indication: DEPRESSION
     Dosage: UNKNOWN DOSE AT NIGHTS
     Route: 048
     Dates: start: 2009
  4. SEROQUEL XR [Suspect]
     Indication: CONVULSION
     Dosage: HALF TABLETS AT NIGHTS
     Route: 048
  5. SEROQUEL XR [Suspect]
     Indication: SEROTONIN SYNDROME
     Dosage: HALF TABLETS AT NIGHTS
     Route: 048
  6. SEROQUEL XR [Suspect]
     Indication: DEPRESSION
     Dosage: HALF TABLETS AT NIGHTS
     Route: 048
  7. SEROQUEL XR [Suspect]
     Indication: CONVULSION
     Route: 048
  8. SEROQUEL XR [Suspect]
     Indication: SEROTONIN SYNDROME
     Route: 048
  9. SEROQUEL XR [Suspect]
     Indication: DEPRESSION
     Route: 048
  10. LAMICTAL [Concomitant]
  11. CLONAZEPAM [Concomitant]

REACTIONS (8)
  - Headache [Unknown]
  - Feeling jittery [Unknown]
  - Insomnia [Unknown]
  - Tremor [Unknown]
  - Drug withdrawal syndrome [Unknown]
  - Intentional drug misuse [Unknown]
  - Off label use [Unknown]
  - Drug dose omission [Unknown]
